FAERS Safety Report 4986310-8 (Version None)
Quarter: 2006Q2

REPORT INFORMATION
  Report Type: 
  Country: None (occurrence: None)
  Receive Date: 20060428
  Receipt Date: 20050930
  Transmission Date: 20061013
  Serious: Yes (Hospitalization)
  Sender: FDA-Public Use
  Company Number: PR-MERCK-0510USA01597

PATIENT
  Age: 88 Year
  Sex: Male
  Weight: 68 kg

DRUGS (5)
  1. VIOXX [Suspect]
     Indication: ARTHRITIS
     Route: 048
     Dates: start: 20031201
  2. ASPIRIN [Concomitant]
     Route: 065
  3. VERAPAMIL [Concomitant]
     Route: 065
  4. LIPITOR [Concomitant]
     Route: 065
  5. HYDROCHLOROTHIAZIDE [Concomitant]
     Route: 065

REACTIONS (5)
  - ANAEMIA [None]
  - DIVERTICULUM [None]
  - GASTROENTERITIS RADIATION [None]
  - HAEMORRHOIDS [None]
  - HYPERLIPIDAEMIA [None]
